FAERS Safety Report 15165716 (Version 1)
Quarter: 2018Q3

REPORT INFORMATION
  Report Type: Spontaneous
  Country: US (occurrence: US)
  Receive Date: 20180621
  Receipt Date: 20180621
  Transmission Date: 20181010
  Serious: Yes (Hospitalization)
  Sender: FDA-Public Use
  Company Number: None

PATIENT
  Sex: Female

DRUGS (18)
  1. QVAR [Concomitant]
     Active Substance: BECLOMETHASONE DIPROPIONATE
  2. CLONAZEPAM. [Concomitant]
     Active Substance: CLONAZEPAM
  3. LEVOTHYROXIN [Concomitant]
     Active Substance: LEVOTHYROXINE
  4. REBIF [Suspect]
     Active Substance: INTERFERON BETA-1A
     Indication: MULTIPLE SCLEROSIS
     Route: 058
     Dates: start: 20180302
  5. VITAMIN D [Concomitant]
     Active Substance: CHOLECALCIFEROL
  6. METOPROLOL TARTRATE. [Concomitant]
     Active Substance: METOPROLOL TARTRATE
  7. POT CL MICOR TAB [Concomitant]
  8. PANTOPRAZOLE [Concomitant]
     Active Substance: PANTOPRAZOLE
  9. SUMATRIPTAN. [Concomitant]
     Active Substance: SUMATRIPTAN
  10. ZOLPIDEM [Concomitant]
     Active Substance: ZOLPIDEM\ZOLPIDEM TARTRATE
  11. ZAFIRLUKAST. [Concomitant]
     Active Substance: ZAFIRLUKAST
  12. TOPIRAMATE. [Concomitant]
     Active Substance: TOPIRAMATE
  13. LYRCIA [Concomitant]
  14. LIOTHYRONINE [Concomitant]
     Active Substance: LIOTHYRONINE
  15. SYMBICORT [Concomitant]
     Active Substance: BUDESONIDE\FORMOTEROL FUMARATE DIHYDRATE
  16. LIOTHYRONINE [Concomitant]
     Active Substance: LIOTHYRONINE
  17. ZOLPIDEM [Concomitant]
     Active Substance: ZOLPIDEM\ZOLPIDEM TARTRATE
  18. CLONAZEPAM. [Concomitant]
     Active Substance: CLONAZEPAM

REACTIONS (2)
  - Nonspecific reaction [None]
  - Hospitalisation [None]
